FAERS Safety Report 7006006-0 (Version None)
Quarter: 2010Q3

REPORT INFORMATION
  Report Type: 
  Country: None (occurrence: None)
  Receive Date: 20100921
  Receipt Date: 20100909
  Transmission Date: 20110219
  Serious: Yes (Death, Life-Threatening, Other)
  Sender: FDA-Public Use
  Company Number: ZA-GENZYME-CLOF-1000988

PATIENT
  Sex: Male
  Weight: 85 kg

DRUGS (8)
  1. CLOLAR [Suspect]
     Indication: ACUTE LYMPHOCYTIC LEUKAEMIA
     Dosage: 50 MG/M2, QDX5
     Route: 042
     Dates: start: 20100428, end: 20100502
  2. CYCLOPHOSPHAMIDE [Suspect]
     Indication: ACUTE LYMPHOCYTIC LEUKAEMIA
     Dosage: 400 MG/M2, QDX5
     Route: 042
     Dates: start: 20100428, end: 20100502
  3. ETOPOSIDE [Suspect]
     Indication: ACUTE LYMPHOCYTIC LEUKAEMIA
     Dosage: 150 MG/M2, QDX5
     Route: 042
     Dates: start: 20100428, end: 20100502
  4. ACYCLOVIR [Concomitant]
     Indication: PROPHYLAXIS
     Dosage: 200 MG, TID
     Route: 048
     Dates: start: 20100420, end: 20100525
  5. AMPHOTERICIN B [Concomitant]
     Indication: FUNGAL INFECTION
     Dosage: 50 MG, QD
     Route: 042
     Dates: start: 20100525, end: 20100525
  6. OESTROGEN [Concomitant]
     Indication: HAEMORRHAGE
     Dosage: 25 MG, UNK
     Route: 030
     Dates: start: 20100525, end: 20100525
  7. DOLASETRON [Concomitant]
     Indication: NAUSEA
     Dosage: 100 MG, QD
     Route: 042
     Dates: start: 20100505, end: 20100525
  8. FOLIC ACID [Concomitant]
     Indication: PROPHYLAXIS
     Dosage: 5 MG, QD
     Dates: start: 20100505, end: 20100525

REACTIONS (4)
  - FEBRILE NEUTROPENIA [None]
  - LEUKOPENIA [None]
  - PANCYTOPENIA [None]
  - SEPSIS [None]
